FAERS Safety Report 5263960-5 (Version None)
Quarter: 2007Q1

REPORT INFORMATION
  Report Type: 
  Country: None (occurrence: None)
  Receive Date: 20070313
  Receipt Date: 20070305
  Transmission Date: 20070707
  Serious: No
  Sender: FDA-Public Use
  Company Number: DE-ELI_LILLY_AND_COMPANY-DE200703001644

PATIENT
  Age: 64 Year
  Sex: Female

DRUGS (6)
  1. ZYPREXA [Suspect]
     Indication: BIPOLAR I DISORDER
     Dosage: 10 MG, DAILY (1/D)
     Route: 048
     Dates: start: 20060501, end: 20070301
  2. ZYPREXA [Suspect]
     Dosage: 7.5 MG, DAILY (1/D)
     Route: 048
  3. CIPRALEX [Concomitant]
     Dosage: 10 MG, UNK
  4. ERGENYL CHRONO [Concomitant]
     Dosage: 600 MG, 2/D
     Route: 065
     Dates: start: 20060701
  5. LEVOTHYROXINE SODIUM [Concomitant]
     Route: 065
  6. PRESOMEN /00073001/ [Concomitant]
     Dosage: 0.3 UNK, DAILY (1/D)
     Route: 065
     Dates: start: 20060501, end: 20070301

REACTIONS (1)
  - PLATELET COUNT DECREASED [None]
